FAERS Safety Report 7379924-1 (Version None)
Quarter: 2011Q1

REPORT INFORMATION
  Report Type: 
  Country: None (occurrence: None)
  Receive Date: 20110329
  Receipt Date: 20110314
  Transmission Date: 20110831
  Serious: Yes (Other)
  Sender: FDA-Public Use
  Company Number: PHHY2011US20554

PATIENT
  Age: 67 Year
  Sex: Female

DRUGS (3)
  1. RECLAST [Suspect]
     Dosage: UNK
     Dates: start: 20110223
  2. SYNTHROID [Concomitant]
  3. CALCIUM [Concomitant]
     Dosage: 1000 MG, UNK

REACTIONS (5)
  - JOINT SWELLING [None]
  - PHLEBITIS [None]
  - HEADACHE [None]
  - ERYTHEMA [None]
  - INFLUENZA LIKE ILLNESS [None]
